FAERS Safety Report 7474780-5 (Version None)
Quarter: 2011Q2

REPORT INFORMATION
  Report Type: 
  Country: None (occurrence: None)
  Receive Date: 20110512
  Receipt Date: 20110502
  Transmission Date: 20111010
  Serious: Yes (Hospitalization, Other)
  Sender: FDA-Public Use
  Company Number: US-BAYER-2011-011239

PATIENT
  Age: 43 Year
  Sex: Female
  Weight: 57 kg

DRUGS (8)
  1. SINGULAIR [Concomitant]
  2. FERROUS SULFATE TAB [Concomitant]
  3. LORATADINE [Concomitant]
  4. YAZ [Suspect]
     Indication: PRODUCT USED FOR UNKNOWN INDICATION
     Dosage: UNK
     Dates: start: 20060201, end: 20080101
  5. TRIAMTERENE AND HYDROCHLOROTHIAZIDE [Concomitant]
  6. FLONASE [Concomitant]
  7. ASTELIN [Concomitant]
  8. COLACE [Concomitant]

REACTIONS (6)
  - PULMONARY EMBOLISM [None]
  - INJURY [None]
  - ANXIETY [None]
  - DEFORMITY [None]
  - DEEP VEIN THROMBOSIS [None]
  - PAIN [None]
